FAERS Safety Report 5761375-4 (Version None)
Quarter: 2008Q2

REPORT INFORMATION
  Report Type: 
  Country: None (occurrence: None)
  Receive Date: 20080606
  Receipt Date: 20080603
  Transmission Date: 20081010
  Serious: Yes (Death, Hospitalization)
  Sender: FDA-Public Use
  Company Number: CA-ABBOTT-06P-028-0347202-00

PATIENT
  Sex: Male
  Weight: 78 kg

DRUGS (24)
  1. RITONAVIR SOFT GELATIN CAPSULES (BLINDED) [Suspect]
     Indication: HIV INFECTION
     Route: 048
     Dates: start: 20060509, end: 20060902
  2. TMC125 (BLINDED) [Concomitant]
     Indication: HIV INFECTION
     Route: 048
     Dates: start: 20060509, end: 20060902
  3. ZIDOVUDINE [Concomitant]
     Indication: DRUG USE FOR UNKNOWN INDICATION
     Route: 048
     Dates: start: 20060509, end: 20060901
  4. TMC114 [Concomitant]
     Indication: HIV INFECTION
     Route: 048
     Dates: start: 20060509, end: 20060902
  5. VIREAD [Concomitant]
     Indication: HIV INFECTION
     Route: 048
     Dates: start: 20060509, end: 20060901
  6. FUZEON [Concomitant]
     Indication: HIV INFECTION
     Route: 058
     Dates: start: 20060509, end: 20060901
  7. METHYLPHENIDATE HCL [Concomitant]
     Indication: COGNITIVE DISORDER
     Route: 048
  8. ZITHROMAX [Concomitant]
     Indication: PROPHYLAXIS
     Route: 048
  9. PENTAMIDINE [Concomitant]
     Indication: ANTIBIOTIC PROPHYLAXIS
     Route: 055
  10. ACETAMINOPHEN [Concomitant]
     Indication: HEADACHE
     Route: 048
  11. ACETAMINOPHEN [Concomitant]
     Indication: MIGRAINE
  12. IMODIUM [Concomitant]
     Indication: DIARRHOEA
     Route: 048
  13. IBUROFEN [Concomitant]
     Indication: BACK PAIN
     Route: 048
  14. ROBAXISAL COMPUESTO [Concomitant]
     Indication: BACK PAIN
     Route: 048
  15. ALBUTEROL [Concomitant]
     Indication: ASTHMA
     Route: 055
  16. BUDESONIDE [Concomitant]
     Indication: ASTHMA
     Route: 055
  17. PSYLLIUM HYDROPHILIC MUCILLOID [Concomitant]
     Indication: DRUG USE FOR UNKNOWN INDICATION
     Route: 048
     Dates: start: 20060509
  18. LOMOTIL [Concomitant]
     Indication: DRUG USE FOR UNKNOWN INDICATION
     Route: 048
     Dates: start: 20060523
  19. COTAZYM 8 EC [Concomitant]
     Indication: DIARRHOEA
     Route: 048
     Dates: start: 20060711
  20. CODEINE SUL TAB [Concomitant]
     Indication: DIARRHOEA
     Route: 048
     Dates: start: 20060808
  21. NYSTATIN [Concomitant]
     Indication: ANTIFUNGAL PROPHYLAXIS
     Route: 061
     Dates: start: 20060705
  22. CALCIUM [Concomitant]
     Indication: DIARRHOEA
     Route: 048
     Dates: start: 20060808
  23. BOOST [Concomitant]
     Indication: MEDICAL DIET
     Route: 048
     Dates: start: 20060704
  24. POTASSIUM CHLORIDE [Concomitant]
     Indication: HYPOKALAEMIA
     Route: 048
     Dates: start: 20060812

REACTIONS (5)
  - CYTOMEGALOVIRUS ENTERITIS [None]
  - DIARRHOEA [None]
  - ELECTROLYTE IMBALANCE [None]
  - MYCOBACTERIUM AVIUM COMPLEX INFECTION [None]
  - RENAL FAILURE [None]
